FAERS Safety Report 10384357 (Version 1)
Quarter: 2014Q3

REPORT INFORMATION
  Report Type: Spontaneous
  Country: RO (occurrence: None)
  Receive Date: 20140812
  Receipt Date: 20140812
  Transmission Date: 20150326
  Serious: Yes (Death, Hospitalization)
  Sender: FDA-Public Use
  Company Number: FK201403218

PATIENT
  Age: 36 Year
  Sex: Female
  Weight: 41.2 kg

DRUGS (2)
  1. CAPECITABINE [Suspect]
     Active Substance: CAPECITABINE
     Indication: MALIGNANT NEOPLASM OF AMPULLA OF VATER
     Route: 048
  2. OXALIPLATIN. [Suspect]
     Active Substance: OXALIPLATIN
     Indication: MALIGNANT NEOPLASM OF AMPULLA OF VATER
     Route: 042

REACTIONS (9)
  - Leukocytosis [None]
  - Pancreatitis chronic [None]
  - Anaemia [None]
  - Hepatic steatosis [None]
  - Enteritis [None]
  - Acute respiratory distress syndrome [None]
  - Cardiotoxicity [None]
  - Thrombocytopenia [None]
  - Myocardial fibrosis [None]
